FAERS Safety Report 5320201-8 (Version None)
Quarter: 2007Q2

REPORT INFORMATION
  Report Type: 
  Country: None (occurrence: None)
  Receive Date: 20070509
  Receipt Date: 20070501
  Transmission Date: 20071010
  Serious: Yes (Other)
  Sender: FDA-Public Use
  Company Number: A0649493A

PATIENT
  Age: 61 Year
  Sex: Female

DRUGS (2)
  1. TYKERB [Suspect]
     Indication: BREAST CANCER
     Dosage: 5TAB PER DAY
     Route: 048
     Dates: start: 20070401, end: 20070101
  2. XELODA [Concomitant]

REACTIONS (4)
  - HAEMORRHAGE [None]
  - LOCAL SWELLING [None]
  - LYMPHOEDEMA [None]
  - PAIN IN EXTREMITY [None]
